FAERS Safety Report 19754118 (Version 1)
Quarter: 2021Q3

REPORT INFORMATION
  Report Type: Spontaneous
  Country: US (occurrence: US)
  Receive Date: 20210827
  Receipt Date: 20210827
  Transmission Date: 20211014
  Serious: Yes (Other)
  Sender: FDA-Public Use
  Company Number: None

PATIENT
  Age: 75 Year
  Sex: Female
  Weight: 63.9 kg

DRUGS (8)
  1. LETROZOLE. [Concomitant]
     Active Substance: LETROZOLE
  2. PRAMIPEXOLE DIHYDROCHLORIDE 0.25 MG. [Suspect]
     Active Substance: PRAMIPEXOLE DIHYDROCHLORIDE
     Indication: RESTLESS LEGS SYNDROME
     Dosage: ?          QUANTITY:2 TABLET(S);?
     Route: 048
  3. TRAMADOL. [Concomitant]
     Active Substance: TRAMADOL
  4. ALBUTEROL INHALER [Concomitant]
     Active Substance: ALBUTEROL
  5. ALPRAZOLAM. [Concomitant]
     Active Substance: ALPRAZOLAM
  6. ZOLPIDEM [Concomitant]
     Active Substance: ZOLPIDEM TARTRATE
  7. CULTERELLE PROBIOTICS [Concomitant]
  8. CALTRATE [Concomitant]
     Active Substance: CALCIUM CARBONATE

REACTIONS (6)
  - Anxiety [None]
  - Depression [None]
  - Withdrawal syndrome [None]
  - Decreased appetite [None]
  - Weight decreased [None]
  - Condition aggravated [None]

NARRATIVE: CASE EVENT DATE: 20200601
